FAERS Safety Report 7762783-2 (Version None)
Quarter: 2011Q3

REPORT INFORMATION
  Report Type: 
  Country: None (occurrence: None)
  Receive Date: 20110920
  Receipt Date: 20110909
  Transmission Date: 20111222
  Serious: Yes (Life-Threatening)
  Sender: FDA-Public Use
  Company Number: JP-JHP PHARMACEUTICALS, LLC-JHP201100369

PATIENT
  Sex: Male
  Weight: 77 kg

DRUGS (9)
  1. TIZANIDINE HCL [Concomitant]
     Dosage: UNK
     Route: 048
     Dates: start: 20070403
  2. VOLTAREN [Concomitant]
     Dosage: UNK
     Dates: start: 20070403
  3. ADENOSINE [Concomitant]
     Dosage: UNK
     Route: 048
     Dates: start: 20040817
  4. ALENDRONATE SODIUM [Concomitant]
     Dosage: UNK
     Route: 048
     Dates: start: 20081224
  5. NEUROTROPIN [Concomitant]
     Dosage: UNK
     Route: 048
     Dates: start: 20100728
  6. LOXONIN [Concomitant]
     Dosage: UNK
     Dates: start: 20070501
  7. DANTRIUM [Suspect]
     Indication: SPINAL LIGAMENT OSSIFICATION
     Dosage: 50 MG, TID
     Route: 048
     Dates: start: 20070403
  8. METHYCOBAL [Concomitant]
     Dosage: UNK
     Route: 048
     Dates: start: 20070501
  9. OPALMON [Concomitant]
     Dosage: UNK
     Dates: start: 20070403

REACTIONS (2)
  - ALTERED STATE OF CONSCIOUSNESS [None]
  - CONDITION AGGRAVATED [None]
